FAERS Safety Report 13233275 (Version 2)
Quarter: 2017Q1

REPORT INFORMATION
  Report Type: Spontaneous
  Country: US (occurrence: US)
  Receive Date: 20170215
  Receipt Date: 20170217
  Transmission Date: 20170428
  Serious: Yes (Death, Hospitalization, Other)
  Sender: FDA-Public Use
  Company Number: US-BRISTOL-MYERS SQUIBB COMPANY-BMS-2017-011357

PATIENT
  Age: 62 Year
  Sex: Female
  Weight: 39.91 kg

DRUGS (2)
  1. OPDIVO [Suspect]
     Active Substance: NIVOLUMAB
     Indication: CERVIX CARCINOMA
     Dosage: 120 MG, UNK
     Route: 042
     Dates: start: 20170127
  2. OPDIVO [Suspect]
     Active Substance: NIVOLUMAB
     Indication: UTERINE CANCER
     Route: 065

REACTIONS (3)
  - Product use issue [Unknown]
  - Pain [Unknown]
  - Death [Fatal]

NARRATIVE: CASE EVENT DATE: 20170202
